FAERS Safety Report 6529888-5 (Version None)
Quarter: 2010Q1

REPORT INFORMATION
  Report Type: 
  Country: None (occurrence: None)
  Receive Date: 20100107
  Receipt Date: 20100104
  Transmission Date: 20100710
  Serious: Yes (Death)
  Sender: FDA-Public Use
  Company Number: A0837905A

PATIENT
  Age: 89 Year
  Sex: Female

DRUGS (1)
  1. AVANDIA [Suspect]
     Route: 065
     Dates: start: 20061229

REACTIONS (2)
  - ASPIRATION [None]
  - CEREBROVASCULAR ACCIDENT [None]
